FAERS Safety Report 13229303 (Version 3)
Quarter: 2017Q2

REPORT INFORMATION
  Report Type: Report from Study
  Country: US (occurrence: US)
  Receive Date: 20170214
  Receipt Date: 20170526
  Transmission Date: 20170830
  Serious: Yes (Hospitalization, Disabling)
  Sender: FDA-Public Use
  Company Number: US-ROCHE-1890306

PATIENT
  Age: 7 Year
  Sex: Female
  Weight: 56.1 kg

DRUGS (7)
  1. QVAR [Concomitant]
     Active Substance: BECLOMETHASONE DIPROPIONATE
     Dosage: 2 PUFFS
     Route: 045
  2. ZELBORAF [Suspect]
     Active Substance: VEMURAFENIB
     Indication: MUSCLE DISORDER
     Dosage: TWO 240 MG TABLETS=480 MG, GIVEN TWICE A DAY ;ONGOING: NO
     Route: 048
     Dates: start: 20161028, end: 20170124
  3. RANITIDINE. [Concomitant]
     Active Substance: RANITIDINE
     Route: 048
  4. ZELBORAF [Suspect]
     Active Substance: VEMURAFENIB
     Dosage: DOSAGE GIVEN 5 OF 7 DAYS OF WEEK ;ONGOING: YES
     Route: 048
     Dates: start: 20170421
  5. ZELBORAF [Suspect]
     Active Substance: VEMURAFENIB
     Indication: BRAIN STEM GLIOMA
     Dosage: TWO 240 MG TABLETS=480 MG, GIVEN TWICE A DAY ;ONGOING: NO
     Route: 048
     Dates: start: 20170315, end: 20170420
  6. ZELBORAF [Suspect]
     Active Substance: VEMURAFENIB
     Dosage: 2 DAYS A WEEK ;ONGOING: YES
     Route: 048
     Dates: start: 20170421
  7. GLYCOPYRROLATE. [Concomitant]
     Active Substance: GLYCOPYRROLATE
     Route: 048

REACTIONS (6)
  - Pyrexia [Recovering/Resolving]
  - Respiratory distress [Not Recovered/Not Resolved]
  - Off label use [Unknown]
  - Respiratory failure [Recovering/Resolving]
  - Malaise [Not Recovered/Not Resolved]
  - Product use issue [Unknown]

NARRATIVE: CASE EVENT DATE: 20170124
